FAERS Safety Report 6942016-7 (Version None)
Quarter: 2010Q3

REPORT INFORMATION
  Report Type: 
  Country: None (occurrence: None)
  Receive Date: 20100826
  Receipt Date: 20100813
  Transmission Date: 20110219
  Serious: Yes (Disabling, Other)
  Sender: FDA-Public Use
  Company Number: NO-PFIZER INC-2010067270

PATIENT
  Sex: Female

DRUGS (2)
  1. NEURONTIN [Suspect]
     Indication: PAIN
     Dosage: 300 MG, 3X/DAY
     Route: 048
     Dates: start: 20100429, end: 20100516
  2. NEURONTIN [Suspect]
     Dosage: UNK
     Route: 048
     Dates: start: 20030101, end: 20030101

REACTIONS (6)
  - COORDINATION ABNORMAL [None]
  - HEMIPARESIS [None]
  - MENTAL DISORDER [None]
  - MUSCULAR WEAKNESS [None]
  - SEDATION [None]
  - SOMNOLENCE [None]
